FAERS Safety Report 6837477-8 (Version None)
Quarter: 2010Q3

REPORT INFORMATION
  Report Type: 
  Country: None (occurrence: None)
  Receive Date: 20100713
  Receipt Date: 20070514
  Transmission Date: 20110219
  Serious: No
  Sender: FDA-Public Use
  Company Number: US-PFIZER INC-2007039602

PATIENT
  Age: 63 Year
  Sex: Female
  Weight: 81.8 kg

DRUGS (8)
  1. CHANTIX [Suspect]
     Indication: SMOKING CESSATION THERAPY
     Dates: start: 20070416, end: 20070501
  2. METFORMIN [Concomitant]
  3. CRESTOR [Concomitant]
  4. TRICOR [Concomitant]
  5. ZESTRIL [Concomitant]
  6. ALBUTEROL [Concomitant]
  7. ATROVENT [Concomitant]
  8. ADVAIR DISKUS 100/50 [Concomitant]

REACTIONS (2)
  - NAUSEA [None]
  - TOBACCO USER [None]
